FAERS Safety Report 4351081-5 (Version None)
Quarter: 2004Q2

REPORT INFORMATION
  Report Type: 
  Country: None (occurrence: None)
  Receive Date: 20040427
  Receipt Date: 20040415
  Transmission Date: 20050107
  Serious: Yes (Other)
  Sender: FDA-Public Use
  Company Number: 2004AP00771

PATIENT
  Age: 79 Year
  Sex: Female

DRUGS (4)
  1. IRESSA [Suspect]
     Indication: ADENOCARCINOMA
     Dosage: 250 MG DAILY PO
     Route: 048
     Dates: start: 20040203, end: 20040208
  2. IRESSA [Suspect]
     Indication: NON-SMALL CELL LUNG CANCER
     Dosage: 250 MG DAILY PO
     Route: 048
     Dates: start: 20040203, end: 20040208
  3. RADIATION THERAPY [Suspect]
     Dates: start: 20040109, end: 20040218
  4. SELENICA-R [Concomitant]

REACTIONS (4)
  - BLEPHARITIS [None]
  - CONJUNCTIVITIS [None]
  - RADIATION INJURY [None]
  - RADIATION SKIN INJURY [None]
